FAERS Safety Report 22341644 (Version 1)
Quarter: 2023Q2

REPORT INFORMATION
  Report Type: Spontaneous
  Country: US (occurrence: US)
  Receive Date: 20230518
  Receipt Date: 20230518
  Transmission Date: 20230722
  Serious: No
  Sender: FDA-Public Use
  Company Number: US-GALDERMA-US2023004719

PATIENT

DRUGS (1)
  1. DIFFERIN GEL [Suspect]
     Active Substance: ADAPALENE
     Indication: Product used for unknown indication
     Dosage: 1 DOSAGE FORM, QD, ONCE A DAY
     Route: 061

REACTIONS (5)
  - Condition aggravated [Recovering/Resolving]
  - Dry skin [Recovering/Resolving]
  - Sensitive skin [Recovering/Resolving]
  - Pain of skin [Recovering/Resolving]
  - Paraesthesia [Recovering/Resolving]
